FAERS Safety Report 18871672 (Version 3)
Quarter: 2022Q2

REPORT INFORMATION
  Report Type: Spontaneous
  Country: US (occurrence: US)
  Receive Date: 20210210
  Receipt Date: 20220627
  Transmission Date: 20220721
  Serious: No
  Sender: FDA-Public Use
  Company Number: US-AMGEN-USASP2021020096

PATIENT
  Age: 80 Year
  Sex: Female

DRUGS (2)
  1. ENBREL [Suspect]
     Active Substance: ETANERCEPT
     Indication: Psoriasis
     Dosage: UNK
     Route: 065
  2. COVID-19 vaccine [Concomitant]
     Dosage: UNK

REACTIONS (2)
  - Surgery [Unknown]
  - Psoriasis [Unknown]

NARRATIVE: CASE EVENT DATE: 20160101
